FAERS Safety Report 13015356 (Version 1)
Quarter: 2016Q4

REPORT INFORMATION
  Report Type: Spontaneous
  Country: US (occurrence: US)
  Receive Date: 20161211
  Receipt Date: 20161211
  Transmission Date: 20170207
  Serious: No
  Sender: FDA-Public Use
  Company Number: US-TAIHO ONCOLOGY INC-EU-2016-03121

PATIENT
  Age: 84 Year
  Sex: Male

DRUGS (13)
  1. OXYCODONE [Concomitant]
     Active Substance: OXYCODONE
     Dosage: NI
  2. TRAMADOL. [Concomitant]
     Active Substance: TRAMADOL
     Dosage: NI
  3. LOMOTIL [Concomitant]
     Active Substance: ATROPINE SULFATE\DIPHENOXYLATE HYDROCHLORIDE
     Dosage: NI
  4. PERCOCET [Concomitant]
     Active Substance: ACETAMINOPHEN\OXYCODONE HYDROCHLORIDE
     Dosage: NI
  5. PLAVIX [Concomitant]
     Active Substance: CLOPIDOGREL BISULFATE
     Dosage: NI
  6. TEMAZEPAM. [Concomitant]
     Active Substance: TEMAZEPAM
     Dosage: NI
  7. ENALAPRIL [Concomitant]
     Active Substance: ENALAPRIL
     Dosage: NI
  8. METOPROLOL. [Concomitant]
     Active Substance: METOPROLOL
     Dosage: NI
  9. ATORVASTATIN [Concomitant]
     Active Substance: ATORVASTATIN
     Dosage: NI
  10. LONSURF [Suspect]
     Active Substance: TIPIRACIL HYDROCHLORIDE\TRIFLURIDINE
     Indication: COLON CANCER
     Route: 048
     Dates: start: 20161007
  11. GABAPENTIN. [Concomitant]
     Active Substance: GABAPENTIN
     Dosage: NI
  12. ACETYLSALICYLIC ACID [Concomitant]
     Active Substance: ASPIRIN
     Dosage: NI
  13. PANTOPRAZOLE [Concomitant]
     Active Substance: PANTOPRAZOLE SODIUM
     Dosage: NI

REACTIONS (3)
  - Constipation [Not Recovered/Not Resolved]
  - Diarrhoea [Not Recovered/Not Resolved]
  - Fatigue [Not Recovered/Not Resolved]

NARRATIVE: CASE EVENT DATE: 201610
